FAERS Safety Report 15171088 (Version 1)
Quarter: 2018Q3

REPORT INFORMATION
  Report Type: Spontaneous
  Country: US (occurrence: US)
  Receive Date: 20180622
  Receipt Date: 20180622
  Transmission Date: 20181010
  Serious: No
  Sender: FDA-Public Use
  Company Number: None

PATIENT
  Age: 19 Month
  Sex: Female

DRUGS (5)
  1. AFINITOR [Suspect]
     Active Substance: EVEROLIMUS
     Indication: NERVOUS SYSTEM DISORDER
     Route: 048
     Dates: start: 20180605
  2. DIASTAT PED GEL 2.5 [Concomitant]
  3. KEPPRA SOL 100MG [Concomitant]
  4. ONDANSETRON 4MG [Concomitant]
     Active Substance: ONDANSETRON
  5. CLONAZEPRAM [Concomitant]

REACTIONS (4)
  - Fatigue [None]
  - Decreased appetite [None]
  - Nausea [None]
  - Stomatitis [None]

NARRATIVE: CASE EVENT DATE: 20180622
